FAERS Safety Report 15280302 (Version 2)
Quarter: 2018Q3

REPORT INFORMATION
  Report Type: Spontaneous
  Country: JP (occurrence: JP)
  Receive Date: 20180815
  Receipt Date: 20180817
  Transmission Date: 20181010
  Serious: Yes (Other)
  Sender: FDA-Public Use
  Company Number: JP-PFIZER INC-2018317335

PATIENT
  Sex: Female

DRUGS (1)
  1. FARMORUBICIN [Suspect]
     Active Substance: EPIRUBICIN HYDROCHLORIDE
     Dosage: UNK

REACTIONS (4)
  - Neutrophil count decreased [Unknown]
  - Myelofibrosis [Unknown]
  - Second primary malignancy [Unknown]
  - Bone marrow failure [Unknown]
